FAERS Safety Report 7231066-1 (Version None)
Quarter: 2011Q1

REPORT INFORMATION
  Report Type: 
  Country: None (occurrence: None)
  Receive Date: 20110118
  Receipt Date: 20110107
  Transmission Date: 20110831
  Serious: Yes (Other)
  Sender: FDA-Public Use
  Company Number: US-TEVA-262598USA

PATIENT
  Age: 38 Year
  Sex: Female

DRUGS (1)
  1. COPAXONE [Suspect]
     Indication: MULTIPLE SCLEROSIS
     Route: 058
     Dates: start: 20010101, end: 20010101

REACTIONS (4)
  - MULTIPLE SCLEROSIS RELAPSE [None]
  - DYSPNOEA [None]
  - DEMYELINATION [None]
  - DRUG INEFFECTIVE [None]
